FAERS Safety Report 9510141 (Version 1)
Quarter: 2013Q3

REPORT INFORMATION
  Report Type: Spontaneous
  Country: US (occurrence: US)
  Receive Date: 20130909
  Receipt Date: 20130909
  Transmission Date: 20140515
  Serious: No
  Sender: FDA-Public Use
  Company Number: US-BRISTOL-MYERS SQUIBB COMPANY-18743088

PATIENT
  Age: 59 Year
  Sex: Female

DRUGS (4)
  1. ABILIFY TABS 5 MG [Suspect]
     Dosage: PREVIOUS DOSE;30 MG
  2. MELLARIL [Concomitant]
  3. EFFEXOR [Concomitant]
  4. LEVOTHYROXINE [Concomitant]

REACTIONS (1)
  - Drug ineffective [Unknown]
